FAERS Safety Report 8322227-9 (Version None)
Quarter: 2012Q2

REPORT INFORMATION
  Report Type: 
  Country: None (occurrence: None)
  Receive Date: 20120430
  Receipt Date: 20120424
  Transmission Date: 20120825
  Serious: Yes (Life-Threatening, Other)
  Sender: FDA-Public Use
  Company Number: US-ASTRAZENECA-2012SE19250

PATIENT
  Age: 40 Year
  Sex: Male

DRUGS (1)
  1. NEXIUM [Suspect]
     Route: 048

REACTIONS (11)
  - LYMPHADENOPATHY [None]
  - NEUROPATHY PERIPHERAL [None]
  - HIATUS HERNIA [None]
  - APHAGIA [None]
  - INTENTIONAL DRUG MISUSE [None]
  - PROCEDURAL COMPLICATION [None]
  - GASTRIC DISORDER [None]
  - ABDOMINAL PAIN UPPER [None]
  - INFECTION [None]
  - ULCER [None]
  - GENERAL PHYSICAL HEALTH DETERIORATION [None]
